FAERS Safety Report 11471703 (Version 1)
Quarter: 2015Q3

REPORT INFORMATION
  Report Type: Spontaneous
  Country: US (occurrence: None)
  Receive Date: 20150908
  Receipt Date: 20150908
  Transmission Date: 20151125
  Serious: No
  Sender: FDA-Public Use
  Company Number: ADR-2015-01526

PATIENT
  Age: 70 Year
  Sex: Male

DRUGS (2)
  1. BACLOFEN INTRATHECAL - 500 MCG/ML [Suspect]
     Active Substance: BACLOFEN
     Indication: MUSCLE SPASTICITY
     Dosage: 85 MCG/DAY
  2. ORAL BACLOFEN [Suspect]
     Active Substance: BACLOFEN
     Dosage: 20 MG-30 MG

REACTIONS (11)
  - Overdose [None]
  - Therapeutic response decreased [None]
  - Pruritus [None]
  - Pain in extremity [None]
  - Gait disturbance [None]
  - Hypersomnia [None]
  - Asthenia [None]
  - Pollakiuria [None]
  - Pain [None]
  - Fatigue [None]
  - Adverse drug reaction [None]
